FAERS Safety Report 8201004-3 (Version None)
Quarter: 2012Q1

REPORT INFORMATION
  Report Type: 
  Country: None (occurrence: None)
  Receive Date: 20120312
  Receipt Date: 20111130
  Transmission Date: 20120608
  Serious: No
  Sender: FDA-Public Use
  Company Number: US-ABBOTT-11P-163-0880279-00

PATIENT
  Sex: Female
  Weight: 54.48 kg

DRUGS (2)
  1. LUPRON DEPOT [Suspect]
     Indication: ENDOMETRIOSIS
     Dates: start: 20111103
  2. NORETHINDRONE [Concomitant]
     Indication: HORMONE THERAPY
     Dates: start: 20111101

REACTIONS (2)
  - VAGINAL HAEMORRHAGE [None]
  - AFFECT LABILITY [None]
